FAERS Safety Report 20534265 (Version 3)
Quarter: 2022Q2

REPORT INFORMATION
  Report Type: Other
  Country: TR (occurrence: None)
  Receive Date: 20220301
  Receipt Date: 20220404
  Transmission Date: 20220721
  Serious: Yes (Other)
  Sender: FDA-Public Use
  Company Number: TR-ROCHE-3027786

PATIENT
  Age: 70 Year
  Sex: Female
  Weight: 75 kg

DRUGS (7)
  1. GLOFITAMAB [Suspect]
     Active Substance: GLOFITAMAB
     Indication: Diffuse large B-cell lymphoma
     Route: 042
     Dates: start: 20220208, end: 20220208
  2. GLOFITAMAB [Suspect]
     Active Substance: GLOFITAMAB
     Route: 042
  3. OBINUTUZUMAB [Suspect]
     Active Substance: OBINUTUZUMAB
     Indication: Diffuse large B-cell lymphoma
     Route: 042
     Dates: start: 20220201, end: 20220201
  4. LENOGRASTIM [Concomitant]
     Active Substance: LENOGRASTIM
     Indication: Neutropenia
     Dosage: 34 UNIT
     Route: 058
     Dates: start: 20220208, end: 20220209
  5. TAZERACIN [Concomitant]
     Indication: Pyrexia
     Route: 042
     Dates: start: 20220208, end: 20220210
  6. LANSOTER [Concomitant]
     Route: 042
     Dates: start: 20220207, end: 20220211
  7. DEKORT [Concomitant]
     Active Substance: DEXAMETHASONE
     Indication: Prophylaxis
     Route: 042
     Dates: start: 20220209, end: 20220211

REACTIONS (1)
  - Cytokine release syndrome [Recovered/Resolved]

NARRATIVE: CASE EVENT DATE: 20220209
